FAERS Safety Report 5494079-6 (Version None)
Quarter: 2007Q4

REPORT INFORMATION
  Report Type: 
  Country: None (occurrence: None)
  Receive Date: 20071023
  Receipt Date: 20071011
  Transmission Date: 20080405
  Serious: Yes (Hospitalization)
  Sender: FDA-Public Use
  Company Number: FR-PFIZER INC-2007086890

PATIENT
  Sex: Female

DRUGS (7)
  1. TRIFLUCAN [Suspect]
     Indication: ORAL FUNGAL INFECTION
     Route: 048
     Dates: start: 20070811, end: 20070818
  2. AUGMENTIN '125' [Suspect]
     Indication: PHARYNGOLARYNGEAL PAIN
     Route: 048
     Dates: start: 20070728, end: 20070803
  3. TAVANIC [Suspect]
     Indication: PHARYNGOLARYNGEAL PAIN
     Route: 048
     Dates: start: 20070803, end: 20070810
  4. ASPIRIN [Suspect]
     Indication: PHARYNGOLARYNGEAL PAIN
     Route: 048
     Dates: start: 20070803, end: 20070810
  5. IRBESARTAN [Concomitant]
  6. LESCOL [Concomitant]
  7. ACARBOSE [Concomitant]

REACTIONS (1)
  - THROMBOCYTOPENIC PURPURA [None]
